FAERS Safety Report 7157991-8 (Version None)
Quarter: 2010Q4

REPORT INFORMATION
  Report Type: 
  Country: None (occurrence: None)
  Receive Date: 20101214
  Receipt Date: 20100420
  Transmission Date: 20110411
  Serious: No
  Sender: FDA-Public Use
  Company Number: US-ASTRAZENECA-2010SE17559

PATIENT
  Sex: Female
  Weight: 59 kg

DRUGS (2)
  1. CRESTOR [Suspect]
     Indication: CAROTID ARTERY STENOSIS
     Route: 048
     Dates: start: 20100201
  2. LORAZEPAM [Concomitant]
     Indication: SLEEP DISORDER

REACTIONS (3)
  - ABASIA [None]
  - BURNING SENSATION [None]
  - PAIN IN EXTREMITY [None]
